FAERS Safety Report 24811419 (Version 2)
Quarter: 2025Q1

REPORT INFORMATION
  Report Type: Report from Study
  Country: CA (occurrence: CA)
  Receive Date: 20250106
  Receipt Date: 20250206
  Transmission Date: 20250409
  Serious: Yes (Other)
  Sender: CSL BEHRING
  Company Number: CA-BEH-2024182036

PATIENT
  Age: 50 Year
  Sex: Female
  Weight: 109 kg

DRUGS (26)
  1. BERINERT [Suspect]
     Active Substance: HUMAN C1-ESTERASE INHIBITOR
     Indication: Hereditary angioedema
     Dosage: 6000 IU, TIW
     Route: 058
     Dates: start: 20210601
  2. BERINERT [Suspect]
     Active Substance: HUMAN C1-ESTERASE INHIBITOR
     Indication: Prophylaxis
     Dosage: 6000 IU, TIW
     Route: 058
     Dates: start: 20210601
  3. BERINERT [Suspect]
     Active Substance: HUMAN C1-ESTERASE INHIBITOR
     Dosage: 6000 IU, TIW
     Route: 058
     Dates: start: 20210601
  4. BERINERT [Suspect]
     Active Substance: HUMAN C1-ESTERASE INHIBITOR
     Route: 058
     Dates: start: 20210601
  5. BERINERT [Suspect]
     Active Substance: HUMAN C1-ESTERASE INHIBITOR
     Dosage: 6000 IU, TIW
     Route: 058
  6. BERINERT [Suspect]
     Active Substance: HUMAN C1-ESTERASE INHIBITOR
     Route: 058
     Dates: start: 20210601
  7. BERINERT [Suspect]
     Active Substance: HUMAN C1-ESTERASE INHIBITOR
     Route: 065
     Dates: start: 20241222
  8. BERINERT [Suspect]
     Active Substance: HUMAN C1-ESTERASE INHIBITOR
     Dosage: 6000 IU, TIW
     Route: 058
     Dates: start: 20210601
  9. ARIPIPRAZOLE [Concomitant]
     Active Substance: ARIPIPRAZOLE
     Dosage: 15 MG, QD
  10. LEVOTHYROXINE SODIUM [Concomitant]
     Active Substance: LEVOTHYROXINE SODIUM
     Dosage: 112 ?G, QD
  11. QUETIAPINE FUMARATE [Concomitant]
     Active Substance: QUETIAPINE FUMARATE
     Dosage: 200 MG, QD
  12. QUETIAPINE FUMARATE [Concomitant]
     Active Substance: QUETIAPINE FUMARATE
     Dosage: 600 MG, HS
  13. HYDROCHLOROTHIAZIDE [Concomitant]
     Active Substance: HYDROCHLOROTHIAZIDE
     Dosage: 25 MG, QD
  14. GABAPENTIN [Concomitant]
     Active Substance: GABAPENTIN
  15. RIVAROXABAN [Concomitant]
     Active Substance: RIVAROXABAN
     Dosage: 20 MG, QD
  16. ZOPICLONE [Concomitant]
     Active Substance: ZOPICLONE
     Dosage: 7.5 MG, HS
  17. NORTRIPTYLINE HYDROCHLORIDE [Concomitant]
     Active Substance: NORTRIPTYLINE HYDROCHLORIDE
  18. ROSUVASTATIN CALCIUM [Concomitant]
     Active Substance: ROSUVASTATIN CALCIUM
     Dosage: 40 MG, QD
  19. OZEMPIC [Concomitant]
     Active Substance: SEMAGLUTIDE
     Dosage: UNK, QW
  20. HUMALOG [Concomitant]
     Active Substance: INSULIN LISPRO
  21. BASAGLAR [Concomitant]
     Active Substance: INSULIN GLARGINE
  22. EZETIMIBE [Concomitant]
     Active Substance: EZETIMIBE
  23. TYLENOL [Concomitant]
     Active Substance: ACETAMINOPHEN
  24. ATIVAN [Concomitant]
     Active Substance: LORAZEPAM
     Route: 048
  25. DAPAGLIFLOZIN [Concomitant]
     Active Substance: DAPAGLIFLOZIN
     Dosage: 10 MG, QD
  26. QUETIAPINE FUMARATE [Concomitant]
     Active Substance: QUETIAPINE FUMARATE

REACTIONS (23)
  - Syncope [Recovered/Resolved]
  - Pain [Unknown]
  - Anxiety [Unknown]
  - Infusion site pain [Unknown]
  - Abdominal distension [Unknown]
  - Infusion site pain [Unknown]
  - Infusion site discomfort [Unknown]
  - Pain in extremity [Unknown]
  - Infusion site pain [Unknown]
  - Fear of injection [Unknown]
  - Injection site pain [Recovered/Resolved]
  - Infusion site pain [Unknown]
  - Infusion site pain [Unknown]
  - Infusion site pain [Unknown]
  - Infusion site pain [Unknown]
  - Infusion site pain [Recovered/Resolved]
  - Fungal infection [Unknown]
  - Infusion site pain [Unknown]
  - Nausea [Unknown]
  - Dizziness [Recovered/Resolved]
  - Nausea [Recovered/Resolved]
  - Injection site pain [Not Recovered/Not Resolved]
  - Nausea [Unknown]

NARRATIVE: CASE EVENT DATE: 20241007
